FAERS Safety Report 16679478 (Version 1)
Quarter: 2019Q3

REPORT INFORMATION
  Report Type: Spontaneous
  Country: US (occurrence: US)
  Receive Date: 20190807
  Receipt Date: 20190807
  Transmission Date: 20191004
  Serious: Yes (Other)
  Sender: FDA-Public Use
  Company Number: US-JNJFOC-20190802563

PATIENT
  Age: 63 Year
  Sex: Male
  Weight: 64 kg

DRUGS (2)
  1. PALIPERIDONE PALMITATE [Suspect]
     Active Substance: PALIPERIDONE PALMITATE
     Indication: SCHIZOAFFECTIVE DISORDER
     Route: 030
  2. PALIPERIDONE PROLONGED-RELEASE TABLET [Concomitant]
     Active Substance: PALIPERIDONE
     Indication: SCHIZOAFFECTIVE DISORDER
     Dosage: FOR 3 DAYS
     Route: 048

REACTIONS (8)
  - Sedation [Recovering/Resolving]
  - Mental status changes [Recovering/Resolving]
  - Treatment noncompliance [Unknown]
  - Post-injection delirium sedation syndrome [Recovering/Resolving]
  - Unresponsive to stimuli [Recovering/Resolving]
  - Injection site erythema [Unknown]
  - Injection site haemorrhage [Unknown]
  - Aphasia [Recovering/Resolving]
